FAERS Safety Report 16468594 (Version 2)
Quarter: 2019Q2

REPORT INFORMATION
  Report Type: Spontaneous
  Country: CO (occurrence: CO)
  Receive Date: 20190624
  Receipt Date: 20190627
  Transmission Date: 20190711
  Serious: Yes (Hospitalization)
  Sender: FDA-Public Use
  Company Number: CO-PFIZER INC-2019264522

PATIENT
  Sex: Female

DRUGS (1)
  1. REAMPLA [Suspect]
     Active Substance: PALBOCICLIB
     Indication: BREAST CANCER METASTATIC
     Dosage: 125 MG, UNK
     Route: 048
     Dates: start: 20190612

REACTIONS (4)
  - Nausea [Unknown]
  - Abdominal pain upper [Unknown]
  - Seizure [Unknown]
  - Vomiting [Unknown]

NARRATIVE: CASE EVENT DATE: 201906
